FAERS Safety Report 15339116 (Version 1)
Quarter: 2018Q4

REPORT INFORMATION
  Report Type: Spontaneous
  Country: BG (occurrence: BG)
  Receive Date: 20180831
  Receipt Date: 20180831
  Transmission Date: 20190204
  Serious: Yes (Other)
  Sender: FDA-Public Use
  Company Number: BG-B. BRAUN MEDICAL INC.-2054525

PATIENT
  Age: 58 Year
  Sex: Male

DRUGS (1)
  1. LACTATED RINGERS SOLUTION [Suspect]
     Active Substance: CALCIUM CHLORIDE\POTASSIUM CHLORIDE\SODIUM CHLORIDE\SODIUM LACTATE

REACTIONS (6)
  - Tremor [None]
  - Palpitations [None]
  - Arrhythmia [None]
  - Hypotension [None]
  - Asphyxia [None]
  - Dyspnoea [None]
